FAERS Safety Report 8235929-X (Version None)
Quarter: 2012Q1

REPORT INFORMATION
  Report Type: 
  Country: None (occurrence: None)
  Receive Date: 20120326
  Receipt Date: 20120322
  Transmission Date: 20120608
  Serious: Yes (Other)
  Sender: FDA-Public Use
  Company Number: GB-MERCK-1203GBR00079

PATIENT
  Age: 47 Year
  Sex: Female
  Weight: 81 kg

DRUGS (3)
  1. RAMIPRIL [Concomitant]
     Route: 065
     Dates: start: 20111219
  2. COZAAR [Suspect]
     Route: 048
     Dates: start: 20120131
  3. AMLODIPINE [Concomitant]
     Route: 065
     Dates: start: 20111219

REACTIONS (2)
  - DYSPNOEA [None]
  - OROPHARYNGEAL PAIN [None]
